FAERS Safety Report 4292805-5 (Version None)
Quarter: 2004Q1

REPORT INFORMATION
  Report Type: 
  Country: None (occurrence: None)
  Receive Date: 20040210
  Receipt Date: 20040129
  Transmission Date: 20041129
  Serious: Yes (Death)
  Sender: FDA-Public Use
  Company Number: CA-JNJFOC-20040200412

PATIENT
  Age: 69 Year
  Sex: Male
  Weight: 55 kg

DRUGS (8)
  1. REMICADE [Suspect]
     Indication: RHEUMATOID ARTHRITIS
     Dosage: 200 MG, INTRAVENOUS
     Route: 042
     Dates: start: 20030908, end: 20031023
  2. ARAVA [Concomitant]
  3. CELEBREX [Concomitant]
  4. METOPROLOL SUCCINATE [Concomitant]
  5. DIDROGYL (CALCIFEDIOL) [Concomitant]
  6. ACETYLSALICYLIC ACID SRT [Concomitant]
  7. CODEINE (CODEINE) [Concomitant]
  8. PROVACHOL (CHOLESTEROL- AND TRIGLYCERIDE REDUCERS) [Concomitant]

REACTIONS (1)
  - LUNG NEOPLASM MALIGNANT [None]
